FAERS Safety Report 11394978 (Version 1)
Quarter: 2015Q3

REPORT INFORMATION
  Report Type: Spontaneous
  Country: US (occurrence: None)
  Receive Date: 20150817
  Receipt Date: 20150817
  Transmission Date: 20151125
  Serious: Yes (Other)
  Sender: FDA-Public Use
  Company Number: None

PATIENT
  Age: 44 Year
  Sex: Female
  Weight: 65.32 kg

DRUGS (10)
  1. PANTOPRAZOLE [Concomitant]
     Active Substance: PANTOPRAZOLE SODIUM
  2. LACOSAMIDE [Concomitant]
     Active Substance: LACOSAMIDE
  3. VALPROIC ACID. [Concomitant]
     Active Substance: VALPROIC ACID
  4. TOPIRAMATE. [Concomitant]
     Active Substance: TOPIRAMATE
  5. CLONAZEPAM. [Concomitant]
     Active Substance: CLONAZEPAM
  6. CLOBAZAM [Concomitant]
     Active Substance: CLOBAZAM
  7. LEVETIRACETAM. [Concomitant]
     Active Substance: LEVETIRACETAM
  8. DENOSUMAB [Concomitant]
     Active Substance: DENOSUMAB
  9. CLOBAZAM 2.5MG/ML LUNDBECK [Suspect]
     Active Substance: CLOBAZAM
     Indication: SEIZURE
     Route: 048
  10. FENOFIBRATE. [Concomitant]
     Active Substance: FENOFIBRATE

REACTIONS (1)
  - Hypothermia [None]

NARRATIVE: CASE EVENT DATE: 20150217
